FAERS Safety Report 9878238 (Version 3)
Quarter: 2014Q1

REPORT INFORMATION
  Report Type: Spontaneous
  Country: GR (occurrence: GR)
  Receive Date: 20140206
  Receipt Date: 20140212
  Transmission Date: 20141002
  Serious: Yes (Other)
  Sender: FDA-Public Use
  Company Number: GR-PFIZER INC-2014024036

PATIENT
  Age: 12 Year
  Sex: Male

DRUGS (3)
  1. GENOTROPIN [Suspect]
     Indication: DWARFISM
     Dosage: 6 MG, FOR 6 DAYS
     Dates: start: 20140114
  2. CECLOR [Suspect]
     Indication: EAR INFECTION
     Dosage: UNK
     Dates: end: 2014
  3. T4 [Concomitant]
     Indication: THYROID DISORDER
     Dosage: 1 DF, 1X/DAY
     Dates: start: 201310

REACTIONS (2)
  - Ear infection [Unknown]
  - Dysuria [Recovered/Resolved]
